FAERS Safety Report 10240719 (Version 1)
Quarter: 2014Q2

REPORT INFORMATION
  Report Type: Spontaneous
  Country: AT (occurrence: AT)
  Receive Date: 20140617
  Receipt Date: 20140617
  Transmission Date: 20141212
  Serious: Yes (Hospitalization)
  Sender: FDA-Public Use
  Company Number: AT-MYLANLABS-2014S1013517

PATIENT
  Age: 63 Year
  Sex: Male

DRUGS (20)
  1. CLOZAPINE [Suspect]
     Indication: SCHIZOPHRENIA, PARANOID TYPE
     Dosage: 50MG DAILY, THEN 200 MG/DAY
     Route: 065
  2. CLOZAPINE [Suspect]
     Indication: SCHIZOPHRENIA, PARANOID TYPE
     Dosage: 200 MG/DAY
     Route: 065
  3. CLOZAPINE [Suspect]
     Indication: SCHIZOPHRENIA, PARANOID TYPE
     Dosage: 50MG, THEN 150 MG/DAY
     Route: 065
  4. CLOZAPINE [Suspect]
     Indication: SCHIZOPHRENIA, PARANOID TYPE
     Dosage: 150 MG/DAY
     Route: 065
  5. LORAZEPAM [Suspect]
     Indication: SCHIZOPHRENIA, PARANOID TYPE
     Dosage: 2 MG/DAY
     Route: 065
  6. LORAZEPAM [Suspect]
     Indication: OFF LABEL USE
     Dosage: 2 MG/DAY
     Route: 065
  7. LORAZEPAM [Suspect]
     Indication: SCHIZOPHRENIA, PARANOID TYPE
     Dosage: 3 MG/DAY
     Route: 065
  8. LORAZEPAM [Suspect]
     Indication: OFF LABEL USE
     Dosage: 3 MG/DAY
     Route: 065
  9. PREGABALIN [Suspect]
     Indication: SCHIZOPHRENIA, PARANOID TYPE
     Dosage: UP TO 300 MG/DAY
     Route: 065
  10. LEVOFLOXACIN [Concomitant]
     Indication: ANTIBIOTIC THERAPY
     Dosage: 500 MG/DAY
     Route: 065
  11. GABAPENTIN [Concomitant]
     Indication: SCHIZOPHRENIA, PARANOID TYPE
     Dosage: 600 MG/DAY
     Route: 065
  12. OLANZAPINE [Concomitant]
     Indication: SCHIZOPHRENIA, PARANOID TYPE
     Dosage: 10 MG/DAY
     Route: 065
  13. OLANZAPINE [Concomitant]
     Indication: SCHIZOPHRENIA, PARANOID TYPE
     Dosage: 20 MG/DAY
     Route: 065
  14. OLANZAPINE [Concomitant]
     Indication: SCHIZOPHRENIA, PARANOID TYPE
     Dosage: 25 MG/DAY
     Route: 065
  15. AMOXI-CLAVULANICO [Concomitant]
     Dosage: 3 G/DAY
     Route: 048
  16. ENOXAPARIN SODIUM [Concomitant]
     Indication: ANTICOAGULANT THERAPY
     Dosage: 160 MG/DAY
     Route: 058
  17. ACENOCOUMAROL [Concomitant]
     Indication: ANTICOAGULANT THERAPY
     Route: 048
  18. GABAPENTIN [Concomitant]
     Indication: SCHIZOPHRENIA, PARANOID TYPE
     Dosage: 300 MG/DAY
     Route: 065
  19. AMLODIPINE [Concomitant]
     Dosage: 5 MG/DAY
     Route: 065
  20. TIOTROPIUM BROMIDE [Concomitant]
     Dosage: 18 MICROG/DAY
     Route: 055

REACTIONS (4)
  - Pulmonary embolism [Recovered/Resolved]
  - Sedation [Recovered/Resolved]
  - Salivary hypersecretion [Recovered/Resolved]
  - Pneumonia aspiration [Recovered/Resolved]
